FAERS Safety Report 9937083 (Version 1)
Quarter: 2014Q1

REPORT INFORMATION
  Report Type: Spontaneous
  Country: US (occurrence: None)
  Receive Date: 20140122
  Receipt Date: 20140122
  Transmission Date: 20141002
  Serious: Yes (Hospitalization, Other)
  Sender: FDA-Public Use
  Company Number: 2013STPI000465

PATIENT
  Age: 51 Year
  Sex: Male
  Weight: 75 kg

DRUGS (3)
  1. ABELCET [Suspect]
     Indication: FUNGAL INFECTION
     Route: 042
     Dates: start: 20131108, end: 20131108
  2. VALACYCLOVIR HYDROCHLORIDE [Suspect]
     Indication: HERPES SIMPLEX
     Route: 048
     Dates: start: 20131107, end: 20131107
  3. VANCOMYCIN HCL [Suspect]
     Indication: BACTERIAL INFECTION
     Route: 042
     Dates: start: 20131105

REACTIONS (1)
  - Renal failure acute [None]
